FAERS Safety Report 7317043 (Version 2)
Quarter: 2013Q3

REPORT INFORMATION
  Report Type: Spontaneous
  Country: US (occurrence: US)
  Receive Date: 20100311
  Receipt Date: 20130829
  Transmission Date: 20140515
  Serious: No
  Sender: FDA-Public Use
  Company Number: US-BIOGENIDEC-2009BI015569

PATIENT
  Age: 33 Year
  Sex: Male

DRUGS (2)
  1. AVONEX [Suspect]
     Indication: MULTIPLE SCLEROSIS
     Route: 030
     Dates: start: 20090409
  2. AVONEX [Suspect]
     Indication: MULTIPLE SCLEROSIS
     Route: 030
     Dates: start: 2011, end: 2012

REACTIONS (5)
  - Back pain [Recovered/Resolved]
  - Influenza [Recovered/Resolved]
  - Adverse event [Unknown]
  - Arthralgia [Recovered/Resolved]
  - Influenza like illness [Recovered/Resolved]
